FAERS Safety Report 15089798 (Version 2)
Quarter: 2018Q3

REPORT INFORMATION
  Report Type: Spontaneous
  Country: DE (occurrence: DE)
  Receive Date: 20180629
  Receipt Date: 20180705
  Transmission Date: 20181010
  Serious: Yes (Death, Hospitalization, Disabling, Other)
  Sender: FDA-Public Use
  Company Number: PHHY2013DE176380

PATIENT
  Age: 46 Year
  Sex: Male
  Weight: 76 kg

DRUGS (10)
  1. IRINOTECAN [Concomitant]
     Active Substance: IRINOTECAN
     Indication: COLORECTAL CANCER
     Dosage: 160 MG, UNK
     Route: 065
     Dates: start: 20130514, end: 20130604
  2. CLEXANE [Concomitant]
     Active Substance: ENOXAPARIN SODIUM
     Indication: THROMBOPHLEBITIS
     Dosage: UNK
     Route: 065
  3. DICLOPHENAC [Concomitant]
     Active Substance: DICLOFENAC SODIUM
     Indication: PAIN IN EXTREMITY
     Dosage: 150 MG, QD
     Route: 048
     Dates: start: 20130528, end: 20130625
  4. OXALIPLATIN. [Suspect]
     Active Substance: OXALIPLATIN
     Indication: COLORECTAL CANCER
     Dosage: LAST DOSE PRIOR TO SAE ON 09/JUL/2013.
     Route: 042
     Dates: start: 20130618, end: 20130813
  5. 5?FLUOROURACIL [Suspect]
     Active Substance: FLUOROURACIL
     Indication: COLORECTAL CANCER
     Dosage: 4000 MG, QW
     Route: 042
     Dates: start: 20130514
  6. 5?FLUOROURACIL [Suspect]
     Active Substance: FLUOROURACIL
     Dosage: 4000 MG, UNK
     Route: 041
     Dates: start: 20130618, end: 20130813
  7. AVASTIN [Suspect]
     Active Substance: BEVACIZUMAB
     Indication: COLORECTAL CANCER
     Dosage: 380 MG, Q2W (AST DOSE PROIR TO SAE ON 09/JUL/2013)
     Route: 042
     Dates: start: 20130515, end: 20130702
  8. FOLINIC ACID [Concomitant]
     Active Substance: LEUCOVORIN
     Indication: COLORECTAL CANCER
     Dosage: 1000 MG, UNK
     Route: 065
     Dates: start: 20130514, end: 20130813
  9. 5?FLUOROURACIL [Suspect]
     Active Substance: FLUOROURACIL
     Dosage: 4000 MG, UNK
     Route: 041
  10. NOVAMIN [Concomitant]
     Indication: PAIN
     Dosage: 6 G, QD
     Route: 048
     Dates: start: 20130618

REACTIONS (2)
  - Intestinal obstruction [Fatal]
  - Malignant neoplasm progression [Fatal]

NARRATIVE: CASE EVENT DATE: 20130604
